FAERS Safety Report 8918590 (Version 3)
Quarter: 2013Q1

REPORT INFORMATION
  Report Type: Report from Study
  Country: US (occurrence: US)
  Receive Date: 20121120
  Receipt Date: 20130117
  Transmission Date: 20140127
  Serious: Yes (Other)
  Sender: FDA-Public Use
  Company Number: US-JNJFOC-20121109117

PATIENT
  Age: 50 None
  Sex: Male
  Weight: 86.18 kg

DRUGS (5)
  1. REMICADE [Suspect]
     Indication: PSORIASIS
     Route: 042
     Dates: start: 2010, end: 201104
  2. STELARA [Suspect]
     Indication: PSORIASIS
     Dosage: SECOND TREATMENT??END DATE: ALSO REPORTED AS APR-2012
     Route: 058
     Dates: start: 20120423, end: 201205
  3. STELARA [Suspect]
     Indication: PSORIASIS
     Route: 058
  4. STELARA [Suspect]
     Indication: PSORIASIS
     Route: 058
     Dates: start: 201203
  5. LEVOTHYROXINE [Concomitant]
     Indication: THYROID DISORDER
     Route: 048
     Dates: start: 2009

REACTIONS (5)
  - Drug ineffective [Recovered/Resolved]
  - Gait disturbance [Recovering/Resolving]
  - Arthritis [Recovering/Resolving]
  - Pain [Recovering/Resolving]
  - Insomnia [Recovering/Resolving]
